FAERS Safety Report 6410993-9 (Version None)
Quarter: 2009Q4

REPORT INFORMATION
  Report Type: 
  Country: None (occurrence: None)
  Receive Date: 20091022
  Receipt Date: 20091014
  Transmission Date: 20100525
  Serious: Yes (Hospitalization)
  Sender: FDA-Public Use
  Company Number: US-AMGEN-QUU369305

PATIENT
  Sex: Female

DRUGS (1)
  1. ENBREL [Suspect]
     Indication: RHEUMATOID ARTHRITIS
     Route: 058

REACTIONS (9)
  - BLOOD PRESSURE DECREASED [None]
  - DYSHIDROSIS [None]
  - ECZEMA [None]
  - INJECTION SITE PAIN [None]
  - OESOPHAGEAL ULCER HAEMORRHAGE [None]
  - PNEUMONIA [None]
  - RHEUMATOID LUNG [None]
  - SCAR [None]
  - STAPHYLOCOCCAL SKIN INFECTION [None]
